FAERS Safety Report 9175427 (Version 2)
Quarter: 2014Q3

REPORT INFORMATION
  Report Type: Spontaneous
  Country: US (occurrence: US)
  Receive Date: 20130320
  Receipt Date: 20140709
  Transmission Date: 20150326
  Serious: No
  Sender: FDA-Public Use
  Company Number: US-009507513-1303USA009684

PATIENT
  Sex: Female

DRUGS (2)
  1. DR. SCHOLL^S MOLEFOAM PADDING/A [Suspect]
     Active Substance: DEVICE
     Indication: HYPERKERATOSIS
     Dosage: UNK, UNKNOWN
     Route: 061
     Dates: start: 201211, end: 20121128
  2. DR. SCHOLL^S MOLEFOAM PADDING/A [Suspect]
     Active Substance: DEVICE
     Indication: PAIN IN EXTREMITY

REACTIONS (4)
  - Application site haemorrhage [Recovering/Resolving]
  - Application site exfoliation [Recovering/Resolving]
  - Application site pain [Recovering/Resolving]
  - Wound [Recovering/Resolving]

NARRATIVE: CASE EVENT DATE: 20121128
